FAERS Safety Report 4778647-2 (Version None)
Quarter: 2005Q3

REPORT INFORMATION
  Report Type: 
  Country: None (occurrence: None)
  Receive Date: 20050926
  Receipt Date: 20050826
  Transmission Date: 20060218
  Serious: Yes (Other)
  Sender: FDA-Public Use
  Company Number: NL-GLAXOSMITHKLINE-B0392495A

PATIENT
  Sex: Male
  Weight: 3.1 kg

DRUGS (3)
  1. FONDAPARINUX SODIUM [Suspect]
     Indication: THROMBOSIS
     Route: 065
     Dates: start: 20050725, end: 20050826
  2. NADROPARINE CALCIUM [Suspect]
     Dates: start: 20050525, end: 20050725
  3. QUESTRAN [Concomitant]
     Route: 065
     Dates: start: 20050804, end: 20050829

REACTIONS (4)
  - ANAEMIA [None]
  - DRUG EXPOSURE DURING PREGNANCY [None]
  - FOETAL DISTRESS SYNDROME [None]
  - UMBILICAL CORD AROUND NECK [None]
